FAERS Safety Report 6477398-6 (Version None)
Quarter: 2009Q4

REPORT INFORMATION
  Report Type: 
  Country: None (occurrence: None)
  Receive Date: 20091207
  Receipt Date: 20091202
  Transmission Date: 20100525
  Serious: Yes (Hospitalization)
  Sender: FDA-Public Use
  Company Number: IT-SP-2009-04764

PATIENT
  Age: 77 Year
  Sex: Male

DRUGS (1)
  1. BCG  THERAPEUTICS [Suspect]
     Indication: BLADDER CANCER
     Route: 043

REACTIONS (5)
  - BACTERIAL TOXAEMIA [None]
  - BOVINE TUBERCULOSIS [None]
  - HYPERPYREXIA [None]
  - MALAISE [None]
  - WEIGHT DECREASED [None]
